FAERS Safety Report 19095186 (Version 3)
Quarter: 2022Q1

REPORT INFORMATION
  Report Type: Report from Study
  Country: CA (occurrence: CA)
  Receive Date: 20210405
  Receipt Date: 20220225
  Transmission Date: 20220423
  Serious: Yes (Hospitalization, Other)
  Sender: FDA-Public Use
  Company Number: CA-ABBVIE-18K-028-2487553-00

PATIENT
  Sex: Female

DRUGS (5)
  1. HUMIRA [Suspect]
     Active Substance: ADALIMUMAB
     Indication: Ankylosing spondylitis
     Route: 058
     Dates: start: 20170323
  2. HUMIRA [Suspect]
     Active Substance: ADALIMUMAB
     Indication: Crohn^s disease
     Route: 058
  3. HUMIRA [Suspect]
     Active Substance: ADALIMUMAB
     Route: 058
  4. HUMIRA [Suspect]
     Active Substance: ADALIMUMAB
     Route: 058
  5. HUMIRA [Suspect]
     Active Substance: ADALIMUMAB
     Route: 058
     Dates: end: 20220110

REACTIONS (20)
  - Periprocedural myocardial infarction [Not Recovered/Not Resolved]
  - Lung neoplasm [Not Recovered/Not Resolved]
  - Chest wall tumour [Not Recovered/Not Resolved]
  - Pericardial effusion [Not Recovered/Not Resolved]
  - Sarcoidosis [Not Recovered/Not Resolved]
  - Ganglioneuroblastoma [Unknown]
  - Splenic neoplasm malignancy unspecified [Unknown]
  - Bone neoplasm [Unknown]
  - Hepatic neoplasm [Unknown]
  - Abdominal neoplasm [Unknown]
  - Lymphoma [Unknown]
  - Neoplasm [Unknown]
  - Pulmonary embolism [Not Recovered/Not Resolved]
  - Thyroid mass [Not Recovered/Not Resolved]
  - Pain [Not Recovered/Not Resolved]
  - Abdominal mass [Not Recovered/Not Resolved]
  - Breast mass [Unknown]
  - Therapeutic response shortened [Unknown]
  - Pain [Unknown]
  - Fatigue [Not Recovered/Not Resolved]

NARRATIVE: CASE EVENT DATE: 20180101
